FAERS Safety Report 4575655-1 (Version None)
Quarter: 2005Q1

REPORT INFORMATION
  Report Type: 
  Country: None (occurrence: None)
  Receive Date: 20050209
  Receipt Date: 20050128
  Transmission Date: 20050727
  Serious: Yes (Hospitalization)
  Sender: FDA-Public Use
  Company Number: AU-GLAXOSMITHKLINE-B0370551A

PATIENT
  Age: 42 Year
  Sex: Female

DRUGS (5)
  1. IMIGRAN [Suspect]
     Indication: ILL-DEFINED DISORDER
     Route: 058
  2. OXAZEPAM [Concomitant]
     Indication: ILL-DEFINED DISORDER
     Dosage: 90MG PER DAY
     Route: 048
  3. CODRAL FORTE [Concomitant]
     Indication: ILL-DEFINED DISORDER
     Route: 048
  4. PROTHIADEN [Concomitant]
     Indication: ILL-DEFINED DISORDER
     Dosage: 75MG PER DAY
     Route: 048
  5. NITRAZEPAM [Concomitant]
     Indication: ILL-DEFINED DISORDER
     Dosage: 10MG PER DAY
     Route: 048

REACTIONS (6)
  - ABDOMINAL PAIN [None]
  - CONVULSION [None]
  - FLATULENCE [None]
  - HYPOCALCAEMIA [None]
  - NAUSEA [None]
  - PANCREATITIS [None]
